FAERS Safety Report 5209409-X (Version None)
Quarter: 2006Q4

REPORT INFORMATION
  Report Type: 
  Country: None (occurrence: None)
  Receive Date: 20061101
  Receipt Date: 20060620
  Transmission Date: 20070319
  Serious: No
  Sender: FDA-Public Use
  Company Number: 2006PV016074

PATIENT
  Age: 74 Year
  Sex: Female
  Weight: 83.9154 kg

DRUGS (4)
  1. SYMLIN [Suspect]
     Indication: DIABETES MELLITUS NON-INSULIN-DEPENDENT
     Dosage: SEE IMAGE
     Route: 058
     Dates: start: 20060401, end: 20060401
  2. SYMLIN [Suspect]
     Indication: DIABETES MELLITUS NON-INSULIN-DEPENDENT
     Dosage: SEE IMAGE
     Route: 058
     Dates: start: 20060401, end: 20060401
  3. LANTUS [Concomitant]
  4. GLUCOPHAGE [Concomitant]

REACTIONS (3)
  - HYPERSENSITIVITY [None]
  - INJECTION SITE IRRITATION [None]
  - INJECTION SITE RASH [None]
